FAERS Safety Report 13117034 (Version 4)
Quarter: 2017Q1

REPORT INFORMATION
  Report Type: Report from Study
  Country: BR (occurrence: BR)
  Receive Date: 20170116
  Receipt Date: 20170227
  Transmission Date: 20170428
  Serious: Yes (Disabling, Congenital Anomaly, Other)
  Sender: FDA-Public Use
  Company Number: PHHY2017BR005026

PATIENT
  Sex: Female
  Weight: 58 kg

DRUGS (3)
  1. ACLASTA [Suspect]
     Active Substance: ZOLEDRONIC ACID
     Indication: OSTEOPOROSIS
     Dosage: 5 MG, Q12MO
     Route: 042
     Dates: start: 201402
  2. ACLASTA [Suspect]
     Active Substance: ZOLEDRONIC ACID
     Dosage: UNK
     Route: 065
     Dates: start: 201503
  3. ACLASTA [Suspect]
     Active Substance: ZOLEDRONIC ACID
     Dosage: 5 MG/DL (100 ML), UNK
     Route: 065
     Dates: start: 201603

REACTIONS (11)
  - Wrist fracture [Recovered/Resolved]
  - Thrombosis [Unknown]
  - Bone density abnormal [Unknown]
  - Fall [Unknown]
  - Face injury [Unknown]
  - Nasal injury [Unknown]
  - Inappropriate schedule of drug administration [Unknown]
  - Drug ineffective [Unknown]
  - Foot fracture [Recovering/Resolving]
  - Cerebrovascular accident [Unknown]
  - Visual impairment [Unknown]

NARRATIVE: CASE EVENT DATE: 2015
